FAERS Safety Report 14994330 (Version 2)
Quarter: 2018Q3

REPORT INFORMATION
  Report Type: Report from Study
  Country: None (occurrence: CA)
  Receive Date: 20180611
  Receipt Date: 20180702
  Transmission Date: 20181010
  Serious: Yes (Hospitalization, Other)
  Sender: FDA-Public Use
  Company Number: CA-ABBVIE-18K-028-2380313-00

PATIENT
  Sex: Female

DRUGS (3)
  1. METHOTREXATE. [Concomitant]
     Active Substance: METHOTREXATE
     Indication: SARCOIDOSIS
     Route: 048
     Dates: start: 2016, end: 20180518
  2. HUMIRA [Suspect]
     Active Substance: ADALIMUMAB
     Indication: PRODUCT USED FOR UNKNOWN INDICATION
     Route: 058
     Dates: start: 20171206, end: 20180518
  3. PREDNISONE. [Concomitant]
     Active Substance: PREDNISONE
     Indication: SARCOIDOSIS
     Route: 048

REACTIONS (7)
  - Myocardial infarction [Recovering/Resolving]
  - General physical health deterioration [Not Recovered/Not Resolved]
  - Pulmonary tuberculosis [Recovering/Resolving]
  - Ulcer [Not Recovered/Not Resolved]
  - Pneumonia [Recovered/Resolved]
  - Enterococcus test positive [Unknown]
  - Dyslipidaemia [Unknown]

NARRATIVE: CASE EVENT DATE: 2018
